FAERS Safety Report 11302394 (Version 1)
Quarter: 2015Q3

REPORT INFORMATION
  Report Type: Spontaneous
  Country: US (occurrence: US)
  Receive Date: 20150723
  Receipt Date: 20150723
  Transmission Date: 20151125
  Serious: No
  Sender: FDA-Public Use
  Company Number: US-PFIZER INC-2015243487

PATIENT

DRUGS (2)
  1. TAFIL [Suspect]
     Active Substance: ALPRAZOLAM
     Indication: PANIC ATTACK
  2. TAFIL [Suspect]
     Active Substance: ALPRAZOLAM
     Indication: ANXIETY
     Dosage: 2 MG, UNK

REACTIONS (1)
  - Drug effect incomplete [Unknown]
